FAERS Safety Report 6246457-5 (Version None)
Quarter: 2009Q2

REPORT INFORMATION
  Report Type: 
  Country: None (occurrence: None)
  Receive Date: 20090626
  Receipt Date: 20090619
  Transmission Date: 20091009
  Serious: Yes (Other)
  Sender: FDA-Public Use
  Company Number: JP-ASTRAZENECA-2009SE03062

PATIENT
  Age: 34 Year
  Sex: Female

DRUGS (1)
  1. OMEPRAL [Suspect]
     Dosage: DOSE UNKNOWN
     Route: 048
     Dates: start: 20080301, end: 20080401

REACTIONS (1)
  - TOXIC EPIDERMAL NECROLYSIS [None]
